FAERS Safety Report 16947582 (Version 1)
Quarter: 2019Q4

REPORT INFORMATION
  Report Type: Other
  Country: US (occurrence: US)
  Receive Date: 20191022
  Receipt Date: 20191022
  Transmission Date: 20200122
  Serious: Yes (Death)
  Sender: FDA-Public Use
  Company Number: US-INTERCEPT-PM2019001847

PATIENT
  Age: 69 Year
  Sex: Female

DRUGS (2)
  1. OCALIVA [Suspect]
     Active Substance: OBETICHOLIC ACID
     Indication: PRIMARY BILIARY CHOLANGITIS
     Dosage: 5 MG, QW
     Route: 048
     Dates: start: 20180629, end: 2018
  2. OCALIVA [Suspect]
     Active Substance: OBETICHOLIC ACID
     Dosage: 10 MG, QW
     Route: 048
     Dates: start: 20180927

REACTIONS (1)
  - Death [Fatal]

NARRATIVE: CASE EVENT DATE: 20190723
